FAERS Safety Report 7394099-0 (Version None)
Quarter: 2011Q2

REPORT INFORMATION
  Report Type: 
  Country: None (occurrence: None)
  Receive Date: 20110405
  Receipt Date: 20110330
  Transmission Date: 20111010
  Serious: Yes (Hospitalization)
  Sender: FDA-Public Use
  Company Number: US-GILEAD-2011-0037109

PATIENT
  Age: 71 Year
  Sex: Female

DRUGS (13)
  1. LETAIRIS [Suspect]
     Indication: PULMONARY ARTERIAL HYPERTENSION
     Route: 048
     Dates: start: 20110119, end: 20110208
  2. TORSEMIDE [Concomitant]
  3. ZOLPIDEM [Concomitant]
  4. AMLODIPINE BESYLATE [Concomitant]
  5. CYMBALTA [Concomitant]
  6. ALPRAZOLAM [Concomitant]
  7. SIMVASTATIN [Concomitant]
  8. LISINOPRIL [Concomitant]
  9. SPIRONOLACTONE [Concomitant]
  10. LEVOXYL [Concomitant]
  11. LYRICA [Concomitant]
  12. FLUCONAZOLE [Concomitant]
  13. ROPINIROLE [Concomitant]

REACTIONS (3)
  - PYREXIA [None]
  - RASH ERYTHEMATOUS [None]
  - URINARY TRACT INFECTION [None]
